FAERS Safety Report 12608638 (Version 3)
Quarter: 2016Q3

REPORT INFORMATION
  Report Type: Report from Study
  Country: US (occurrence: US)
  Receive Date: 20160729
  Receipt Date: 20160810
  Transmission Date: 20161109
  Serious: Yes (Death, Hospitalization)
  Sender: FDA-Public Use
  Company Number: US-ABBVIE-16K-163-1685852-00

PATIENT
  Age: 21 Year
  Sex: Female

DRUGS (1)
  1. HUMIRA [Suspect]
     Active Substance: ADALIMUMAB
     Indication: COLITIS ULCERATIVE
     Route: 058
     Dates: start: 20160715, end: 20160804

REACTIONS (4)
  - Frequent bowel movements [Unknown]
  - Death [Fatal]
  - Haematochezia [Unknown]
  - Epistaxis [Unknown]

NARRATIVE: CASE EVENT DATE: 20160804
